FAERS Safety Report 13523554 (Version 4)
Quarter: 2018Q3

REPORT INFORMATION
  Report Type: Spontaneous
  Country: US (occurrence: US)
  Receive Date: 20170508
  Receipt Date: 20180905
  Transmission Date: 20181010
  Serious: No
  Sender: FDA-Public Use
  Company Number: US-VIFOR (INTERNATIONAL) INC.-VIT-2017-01836

PATIENT
  Age: 72 Year
  Sex: Female
  Weight: 81.72 kg

DRUGS (15)
  1. VELTASSA [Suspect]
     Active Substance: PATIROMER
  2. FOLIC ACID. [Concomitant]
     Active Substance: FOLIC ACID
  3. AMLODIPINE [Concomitant]
     Active Substance: AMLODIPINE BESYLATE
  4. LISINOPRIL. [Concomitant]
     Active Substance: LISINOPRIL
  5. VELTASSA [Suspect]
     Active Substance: PATIROMER
  6. CENTRAL?VITE [Concomitant]
  7. ASCORBIC ACID~~TOCOPHERYL ACETATE~~ZINC OXIDE~~CUPRIC OXIDE~~BETACAROTENE [Concomitant]
  8. OMEPRAZOLE. [Concomitant]
     Active Substance: OMEPRAZOLE
  9. ERGOCALCIFEROL. [Concomitant]
     Active Substance: ERGOCALCIFEROL
  10. VELTASSA [Suspect]
     Active Substance: PATIROMER
     Indication: HYPERKALAEMIA
     Route: 048
     Dates: start: 20161011
  11. ACETYLSALICYLIC ACID [Concomitant]
     Active Substance: ASPIRIN
  12. TUMS EX [Concomitant]
     Active Substance: CALCIUM CARBONATE
  13. ATORVASTATIN [Concomitant]
     Active Substance: ATORVASTATIN
  14. CHLORTALIDONE [Concomitant]
     Active Substance: CHLORTHALIDONE
  15. COLECALCIFEROL [Concomitant]
     Active Substance: CHOLECALCIFEROL

REACTIONS (4)
  - Constipation [Not Recovered/Not Resolved]
  - Drug dose omission [Unknown]
  - Abdominal distension [Recovered/Resolved]
  - Feeling abnormal [Recovered/Resolved]

NARRATIVE: CASE EVENT DATE: 201611
